FAERS Safety Report 5391229-7 (Version None)
Quarter: 2007Q3

REPORT INFORMATION
  Report Type: 
  Country: None (occurrence: None)
  Receive Date: 20070717
  Receipt Date: 20070706
  Transmission Date: 20080115
  Serious: Yes (Hospitalization)
  Sender: FDA-Public Use
  Company Number: 163-21880-07070377

PATIENT
  Age: 50 Year
  Sex: Male
  Weight: 149.687 kg

DRUGS (1)
  1. REVLIMID [Suspect]
     Indication: CHRONIC LYMPHOCYTIC LEUKAEMIA
     Dosage: 25 MG, DAILY ON DAYS 1 - 21, ORAL
     Route: 048
     Dates: start: 20070611, end: 20070701

REACTIONS (3)
  - DYSPNOEA [None]
  - LYMPHADENOPATHY [None]
  - TONSILLAR HYPERTROPHY [None]
